FAERS Safety Report 16808187 (Version 1)
Quarter: 2019Q3

REPORT INFORMATION
  Report Type: Other
  Country: DE (occurrence: US)
  Receive Date: 20190916
  Receipt Date: 20190916
  Transmission Date: 20191005
  Serious: Yes (Hospitalization, Other)
  Sender: FDA-Public Use
  Company Number: US-DEXPHARM-20190742

PATIENT
  Age: 19 Year
  Sex: Male

DRUGS (7)
  1. LEVETIRACETAM. [Suspect]
     Active Substance: LEVETIRACETAM
     Indication: FOCAL DYSCOGNITIVE SEIZURES
     Route: 041
  2. LEVETIRACETAM. [Suspect]
     Active Substance: LEVETIRACETAM
     Indication: FOCAL DYSCOGNITIVE SEIZURES
     Dosage: DAILY
  3. OXCARBAZEPINE. [Concomitant]
     Active Substance: OXCARBAZEPINE
     Dosage: IN THE EVENING
  4. LORAZEPAM NON DEXCEL PRODUCT [Concomitant]
     Dosage: AS NEEDED
     Route: 041
  5. OXCARBAZEPINE. [Concomitant]
     Active Substance: OXCARBAZEPINE
     Dosage: IN THE MORNING
  6. LORAZEPAM NON DEXCEL PRODUCT [Suspect]
     Active Substance: LORAZEPAM
     Indication: FOCAL DYSCOGNITIVE SEIZURES
     Route: 041
  7. OXCARBAZEPINE. [Suspect]
     Active Substance: OXCARBAZEPINE
     Indication: FOCAL DYSCOGNITIVE SEIZURES

REACTIONS (1)
  - Rhabdomyolysis [Recovered/Resolved]
